FAERS Safety Report 25943814 (Version 2)
Quarter: 2025Q4

REPORT INFORMATION
  Report Type: Spontaneous
  Country: US (occurrence: US)
  Receive Date: 20251021
  Receipt Date: 20251114
  Transmission Date: 20260118
  Serious: Yes (Death, Hospitalization, Other)
  Sender: DAIICHI
  Company Number: US-DSJP-DS-2025-143658-USAA

PATIENT
  Age: 58 Year
  Sex: Female

DRUGS (2)
  1. VANFLYTA [Suspect]
     Active Substance: QUIZARTINIB DIHYDROCHLORIDE
     Indication: Acute myeloid leukaemia
     Dosage: 35.4 MG, QD
     Route: 048
     Dates: start: 202502, end: 202504
  2. VANFLYTA [Suspect]
     Active Substance: QUIZARTINIB DIHYDROCHLORIDE
     Dosage: 53 MG, QD
     Route: 048

REACTIONS (2)
  - Death [Fatal]
  - Skin laceration [Not Recovered/Not Resolved]

NARRATIVE: CASE EVENT DATE: 20251014
